FAERS Safety Report 10910961 (Version 1)
Quarter: 2015Q1

REPORT INFORMATION
  Report Type: Spontaneous
  Country: US (occurrence: US)
  Receive Date: 20150312
  Receipt Date: 20150312
  Transmission Date: 20150721
  Serious: Yes (Other)
  Sender: FDA-Public Use
  Company Number: US-BAXTER-2015BAX012371

PATIENT
  Age: 62 Year
  Sex: Male

DRUGS (12)
  1. PENICILLIN G POTASSIUM INJECTION, USP [Suspect]
     Active Substance: PENICILLIN G POTASSIUM
     Indication: SEPTIC ARTHRITIS STREPTOCOCCAL
     Dosage: 18 MILLION UNITS VIA 24 HOUR INFUSION
     Route: 042
  2. PENICILLIN G POTASSIUM INJECTION, USP [Suspect]
     Active Substance: PENICILLIN G POTASSIUM
     Indication: BETA HAEMOLYTIC STREPTOCOCCAL INFECTION
  3. CYCLOBENZAPRINE [Concomitant]
     Active Substance: CYCLOBENZAPRINE
     Indication: ROTATOR CUFF SYNDROME
     Route: 065
  4. PENICILLIN G POTASSIUM INJECTION, USP [Suspect]
     Active Substance: PENICILLIN G POTASSIUM
     Indication: OSTEOMYELITIS BACTERIAL
     Route: 042
  5. ACETAMINOPHEN. [Concomitant]
     Active Substance: ACETAMINOPHEN
     Indication: ROTATOR CUFF SYNDROME
     Route: 065
  6. HYDROCODONE [Concomitant]
     Active Substance: HYDROCODONE
     Indication: ROTATOR CUFF SYNDROME
     Route: 065
  7. AZITHROMYCIN [Concomitant]
     Active Substance: AZITHROMYCIN ANHYDROUS
     Indication: INFLUENZA LIKE ILLNESS
     Route: 048
  8. CEFAZOLIN INJECTION [Suspect]
     Active Substance: CEFAZOLIN
     Indication: SEPTIC ARTHRITIS STREPTOCOCCAL
     Route: 042
  9. OSELTAMIVIR [Concomitant]
     Active Substance: OSELTAMIVIR
     Indication: INFLUENZA LIKE ILLNESS
     Route: 048
  10. CEFAZOLIN INJECTION [Suspect]
     Active Substance: CEFAZOLIN
     Indication: OSTEOMYELITIS BACTERIAL
  11. AZITHROMYCIN [Concomitant]
     Active Substance: AZITHROMYCIN ANHYDROUS
     Route: 042
  12. CEFAZOLIN INJECTION [Suspect]
     Active Substance: CEFAZOLIN
     Indication: BETA HAEMOLYTIC STREPTOCOCCAL INFECTION

REACTIONS (1)
  - Cellulitis [Recovered/Resolved]
